FAERS Safety Report 13176221 (Version 1)
Quarter: 2017Q1

REPORT INFORMATION
  Report Type: Spontaneous
  Country: US (occurrence: US)
  Receive Date: 20170201
  Receipt Date: 20170201
  Transmission Date: 20170428
  Serious: No
  Sender: FDA-Public Use
  Company Number: GXBR2016US002747

PATIENT
  Sex: Female

DRUGS (1)
  1. TEMOVATE [Suspect]
     Active Substance: CLOBETASOL PROPIONATE
     Indication: PSORIASIS
     Dosage: UNK DF, UNK
     Route: 061

REACTIONS (1)
  - Psoriasis [Unknown]
